FAERS Safety Report 7785052 (Version 2)
Quarter: 2012Q4

REPORT INFORMATION
  Report Type: 
  Country: US (occurrence: US)
  Receive Date: 20110129
  Receipt Date: 20120921
  Transmission Date: 20130627
  Serious: Yes (Other)
  Sender: FDA-Public Use
  Company Number: US-ABBOTT-10P-163-0635904-00

PATIENT
  Age: 27 None
  Sex: Female
  Weight: 68.1 kg

DRUGS (1)
  1. HUMIRA [Suspect]
     Dosage: 40 mg Q 2 weeks to QW
     Dates: start: 200603, end: 200809

REACTIONS (7)
  - Double stranded DNA antibody positive [Recovered/Resolved]
  - Lupus-like syndrome [Recovered/Resolved]
  - Cutaneous vasculitis [Recovered/Resolved]
  - Polyarthritis [Recovering/Resolving]
  - Arthritis [Unknown]
  - Thyroiditis [Unknown]
  - Therapeutic response unexpected [Unknown]
